FAERS Safety Report 9268651 (Version 1)
Quarter: 2013Q2

REPORT INFORMATION
  Report Type: Report from Study
  Country: US (occurrence: US)
  Receive Date: 20130502
  Receipt Date: 20130502
  Transmission Date: 20140414
  Serious: Yes (Hospitalization)
  Sender: FDA-Public Use
  Company Number: US-GILEAD-2013-0074355

PATIENT
  Age: 59 Year
  Sex: Female

DRUGS (7)
  1. TREPROSTINIL [Suspect]
     Indication: PULMONARY ARTERIAL HYPERTENSION
     Dosage: 5 MG, BID
     Route: 048
     Dates: start: 20080902
  2. AMBRISENTAN [Suspect]
     Indication: PULMONARY ARTERIAL HYPERTENSION
     Dosage: 5 MG, UNK
     Route: 048
  3. REVATIO [Suspect]
     Indication: PULMONARY ARTERIAL HYPERTENSION
     Dosage: 20 MG, UNK
     Route: 048
  4. DEXILANT [Concomitant]
  5. LEXAPRO [Concomitant]
     Indication: DEPRESSION
     Dosage: UNK
  6. TYLENOL                            /00020001/ [Concomitant]
     Indication: HEADACHE
     Dosage: UNK
  7. TYLENOL                            /00020001/ [Concomitant]
     Indication: PAIN

REACTIONS (3)
  - Chest pain [Recovered/Resolved]
  - Palmar erythema [Recovered/Resolved]
  - Flushing [Recovered/Resolved]
